FAERS Safety Report 6499153-3 (Version None)
Quarter: 2009Q4

REPORT INFORMATION
  Report Type: 
  Country: None (occurrence: None)
  Receive Date: 20091215
  Receipt Date: 20091207
  Transmission Date: 20100525
  Serious: Yes (Hospitalization)
  Sender: FDA-Public Use
  Company Number: US-ELI_LILLY_AND_COMPANY-US200912001735

PATIENT
  Sex: Male

DRUGS (5)
  1. HUMALOG MIX 75/25 [Suspect]
     Dosage: 14 U, EACH MORNING
     Dates: start: 20090701
  2. HUMALOG MIX 75/25 [Suspect]
     Dosage: 9 U, EACH EVENING
     Dates: start: 20090701
  3. HUMALOG MIX 75/25 [Suspect]
     Dosage: 14 U, EACH MORNING
     Dates: start: 20090701
  4. HUMALOG MIX 75/25 [Suspect]
     Dosage: 9 U, EACH EVENING
     Dates: start: 20090701
  5. PLAVIX [Concomitant]

REACTIONS (7)
  - BLOOD GLUCOSE INCREASED [None]
  - CONTUSION [None]
  - HYPOACUSIS [None]
  - INCORRECT PRODUCT STORAGE [None]
  - MEDICATION ERROR [None]
  - MYOCARDIAL INFARCTION [None]
  - POOR QUALITY DRUG ADMINISTERED [None]
